FAERS Safety Report 4549660-5 (Version None)
Quarter: 2005Q1

REPORT INFORMATION
  Report Type: 
  Country: None (occurrence: None)
  Receive Date: 20050111
  Receipt Date: 20050104
  Transmission Date: 20050727
  Serious: Yes (Other)
  Sender: FDA-Public Use
  Company Number: GB-GLAXOSMITHKLINE-B0363378A

PATIENT
  Age: 59 Year
  Sex: Female
  Weight: 58.7 kg

DRUGS (11)
  1. AVANDIA [Suspect]
     Dosage: 4MG PER DAY
     Route: 065
  2. ENOXAPARIN SODIUM [Suspect]
     Indication: DEEP VEIN THROMBOSIS
     Route: 030
     Dates: start: 20041203
  3. GLICLAZIDE [Suspect]
     Dosage: 80MG TWICE PER DAY
     Route: 065
  4. ASPIRIN [Concomitant]
     Dosage: 75MG PER DAY
     Route: 065
  5. METOPROLOL [Concomitant]
     Dosage: 100MG PER DAY
     Route: 065
  6. ZOPICLONE [Concomitant]
     Dosage: 7.5MG PER DAY
     Route: 065
  7. FERROGRAD [Concomitant]
     Route: 065
  8. CAPTOPRIL [Concomitant]
     Dosage: 25MG SINGLE DOSE
     Route: 065
  9. TRAZODONE HCL [Concomitant]
     Dosage: 50MG PER DAY
     Route: 065
  10. SIMVASTATIN [Concomitant]
     Dosage: 20MG PER DAY
     Route: 065
  11. BUMETANIDE [Concomitant]
     Dosage: 1MG PER DAY
     Route: 065

REACTIONS (2)
  - DRUG INTERACTION [None]
  - HYPOGLYCAEMIA [None]
